FAERS Safety Report 4726864-X (Version None)
Quarter: 2005Q3

REPORT INFORMATION
  Report Type: 
  Country: None (occurrence: None)
  Receive Date: 20050726
  Receipt Date: 20050719
  Transmission Date: 20060218
  Serious: Yes (Other)
  Sender: FDA-Public Use
  Company Number: THQ2005A00592

PATIENT
  Age: 79 Year
  Sex: Male

DRUGS (5)
  1. PIOGLITAZONE HCL [Suspect]
     Indication: DIABETES MELLITUS
     Dosage: 15 MG (15 MG, 1 IN 1 D) PER ORAL
     Route: 048
     Dates: start: 20031028
  2. NORVASC [Concomitant]
  3. TENORMIN [Concomitant]
  4. ALTACE [Concomitant]
  5. CRESTOR [Concomitant]

REACTIONS (1)
  - LUNG NEOPLASM MALIGNANT [None]
